FAERS Safety Report 21341712 (Version 3)
Quarter: 2025Q2

REPORT INFORMATION
  Report Type: Spontaneous
  Country: US (occurrence: US)
  Receive Date: 20220916
  Receipt Date: 20250617
  Transmission Date: 20250717
  Serious: Yes (Other)
  Sender: AUROBINDO
  Company Number: US-AUROBINDO-AUR-APL-2022-036952

PATIENT
  Age: 39 Year
  Sex: Male

DRUGS (4)
  1. VANCOMYCIN [Suspect]
     Active Substance: VANCOMYCIN
     Indication: Sepsis
     Route: 065
  2. ZOSYN [Suspect]
     Active Substance: PIPERACILLIN SODIUM\TAZOBACTAM SODIUM
     Indication: Sepsis
     Route: 065
  3. INSULIN NOS [Concomitant]
     Active Substance: INSULIN NOS
     Indication: Diabetes mellitus
     Route: 042
  4. PENICILLIN G [Concomitant]
     Active Substance: PENICILLIN G
     Indication: Neurosyphilis
     Route: 065

REACTIONS (5)
  - Hypoxia [Unknown]
  - Jarisch-Herxheimer reaction [Unknown]
  - Pyrexia [Unknown]
  - Myalgia [Unknown]
  - Chills [Unknown]
